FAERS Safety Report 13156290 (Version 1)
Quarter: 2017Q1

REPORT INFORMATION
  Report Type: Spontaneous
  Country: US (occurrence: US)
  Receive Date: 20170126
  Receipt Date: 20170126
  Transmission Date: 20170428
  Serious: Yes (Death)
  Sender: FDA-Public Use
  Company Number: US-PFIZER INC-2017026341

PATIENT
  Age: 51 Year
  Sex: Female

DRUGS (6)
  1. TIZANIDINE. [Suspect]
     Active Substance: TIZANIDINE
  2. DIAZEPAM. [Suspect]
     Active Substance: DIAZEPAM
  3. TRAZODONE [Suspect]
     Active Substance: TRAZODONE HYDROCHLORIDE
  4. TRAMADOL. [Suspect]
     Active Substance: TRAMADOL
  5. GABAPENTIN. [Suspect]
     Active Substance: GABAPENTIN
  6. CLONIDINE. [Suspect]
     Active Substance: CLONIDINE

REACTIONS (1)
  - Completed suicide [Fatal]

NARRATIVE: CASE EVENT DATE: 2015
